FAERS Safety Report 9053782 (Version 6)
Quarter: 2013Q3

REPORT INFORMATION
  Report Type: Spontaneous
  Country: US (occurrence: US)
  Receive Date: 20130131
  Receipt Date: 20130923
  Transmission Date: 20140515
  Serious: Yes (Hospitalization)
  Sender: FDA-Public Use
  Company Number: US-GLAXOSMITHKLINE-A0861362A

PATIENT
  Age: 58 Year
  Sex: Male
  Weight: 100.5 kg

DRUGS (1)
  1. AVANDIA [Suspect]
     Indication: TYPE 2 DIABETES MELLITUS
     Dosage: 4MG TWICE PER DAY
     Route: 048
     Dates: start: 20060329, end: 2007

REACTIONS (3)
  - Myocardial infarction [Recovering/Resolving]
  - Angina pectoris [Unknown]
  - Coronary artery disease [Unknown]
